FAERS Safety Report 9521392 (Version 1)
Quarter: 2013Q3

REPORT INFORMATION
  Report Type: Spontaneous
  Country: US (occurrence: None)
  Receive Date: 20130911
  Receipt Date: 20130911
  Transmission Date: 20140515
  Serious: No
  Sender: FDA-Public Use
  Company Number: AEUSA201300044

PATIENT
  Age: 47 Year
  Sex: Male

DRUGS (6)
  1. GAMMAKED [Suspect]
     Indication: STIFF PERSON SYNDROME
     Route: 042
     Dates: start: 20121210, end: 20121227
  2. BACLOFEN [Concomitant]
  3. AMLODIPNE [Concomitant]
  4. GABAPENTIN [Concomitant]
  5. DIAZEPAM [Concomitant]
  6. LASIX [Concomitant]

REACTIONS (2)
  - Rash erythematous [None]
  - Blister [None]
